FAERS Safety Report 21836159 (Version 4)
Quarter: 2023Q1

REPORT INFORMATION
  Report Type: Spontaneous
  Country: US (occurrence: US)
  Receive Date: 20230109
  Receipt Date: 20230309
  Transmission Date: 20230418
  Serious: No
  Sender: FDA-Public Use
  Company Number: US-BRISTOL-MYERS SQUIBB COMPANY-2023-002995

PATIENT
  Age: 28 Year
  Sex: Female

DRUGS (2)
  1. THALOMID [Suspect]
     Active Substance: THALIDOMIDE
     Indication: Epilepsy
     Route: 048
  2. THALOMID [Suspect]
     Active Substance: THALIDOMIDE
     Indication: Acquired epileptic aphasia
     Dates: start: 202301

REACTIONS (2)
  - Off label use [Unknown]
  - Product availability issue [Unknown]

NARRATIVE: CASE EVENT DATE: 20230106
